FAERS Safety Report 8367953-0 (Version None)
Quarter: 2012Q2

REPORT INFORMATION
  Report Type: 
  Country: None (occurrence: None)
  Receive Date: 20120517
  Receipt Date: 20120514
  Transmission Date: 20120825
  Serious: Yes (Other)
  Sender: FDA-Public Use
  Company Number: JP-PFIZER INC-2012097938

PATIENT
  Age: 26 Year
  Sex: Female

DRUGS (5)
  1. ONON [Concomitant]
     Indication: ASTHMA
     Dosage: 450 MG, 1X/DAY
     Route: 048
     Dates: start: 20120418, end: 20120425
  2. MUCODYNE [Concomitant]
     Indication: RESPIRATORY FUME INHALATION DISORDER
     Dosage: 1500 MG, 1X/DAY
     Route: 048
     Dates: start: 20120418, end: 20120425
  3. ZITHROMAX [Suspect]
     Indication: PERTUSSIS
     Dosage: 500 MG, 1X/DAY
     Route: 048
     Dates: start: 20120418, end: 20120420
  4. RESPLEN [Concomitant]
     Indication: COUGH
     Dosage: 60 MG, 1X/DAY
     Route: 048
     Dates: start: 20120418, end: 20120425
  5. ZITHROMAX [Suspect]
     Indication: MYCOPLASMA INFECTION

REACTIONS (2)
  - DYSPNOEA [None]
  - HEADACHE [None]
